FAERS Safety Report 9293226 (Version 1)
Quarter: 2013Q2

REPORT INFORMATION
  Report Type: Spontaneous
  Country: FR (occurrence: FR)
  Receive Date: 20130516
  Receipt Date: 20130516
  Transmission Date: 20140414
  Serious: Yes (Other)
  Sender: FDA-Public Use
  Company Number: FR-ABBOTT-13P-056-1089561-00

PATIENT
  Age: 42 Year
  Sex: Female

DRUGS (1)
  1. HUMIRA [Suspect]
     Indication: PRODUCT USED FOR UNKNOWN INDICATION
     Route: 058
     Dates: start: 20130119, end: 20130119

REACTIONS (4)
  - Arthralgia [Not Recovered/Not Resolved]
  - Rash maculo-papular [Recovered/Resolved]
  - Injection site erythema [Recovered/Resolved]
  - Synovitis [Not Recovered/Not Resolved]
